FAERS Safety Report 14839191 (Version 1)
Quarter: 2018Q2

REPORT INFORMATION
  Report Type: Spontaneous
  Country: US (occurrence: US)
  Receive Date: 20180502
  Receipt Date: 20180502
  Transmission Date: 20180711
  Serious: Yes (Other)
  Sender: FDA-Public Use
  Company Number: US-PFIZER INC-2018179163

PATIENT
  Sex: Female

DRUGS (3)
  1. EFFEXOR [Suspect]
     Active Substance: VENLAFAXINE HYDROCHLORIDE
  2. DETROL LA [Suspect]
     Active Substance: TOLTERODINE TARTRATE
  3. LYRICA [Suspect]
     Active Substance: PREGABALIN

REACTIONS (1)
  - Neoplasm malignant [Unknown]
